FAERS Safety Report 4912574-2 (Version None)
Quarter: 2006Q1

REPORT INFORMATION
  Report Type: 
  Country: None (occurrence: None)
  Receive Date: 20060215
  Receipt Date: 20060209
  Transmission Date: 20060701
  Serious: Yes (Disabling)
  Sender: FDA-Public Use
  Company Number: US-GLAXOSMITHKLINE-A0593068A

PATIENT
  Age: 7 Year
  Sex: Male

DRUGS (5)
  1. AMOXICILLIN [Suspect]
     Route: 048
     Dates: start: 20060208
  2. DEPAKOTE [Concomitant]
  3. RISPERDAL [Concomitant]
  4. CLONIDINE [Concomitant]
  5. DIMETAPP [Concomitant]

REACTIONS (1)
  - AGGRESSION [None]
